FAERS Safety Report 7444784-7 (Version None)
Quarter: 2011Q2

REPORT INFORMATION
  Report Type: 
  Country: None (occurrence: None)
  Receive Date: 20110429
  Receipt Date: 20110426
  Transmission Date: 20111010
  Serious: Yes (Hospitalization)
  Sender: FDA-Public Use
  Company Number: US-PFIZER INC-2011071487

PATIENT
  Age: 85 Year
  Sex: Female
  Weight: 71.2 kg

DRUGS (4)
  1. ACETYLSALICYLIC ACID [Concomitant]
     Indication: ATRIAL FIBRILLATION
     Dosage: 82 MG, UNK
     Route: 048
  2. WARFARIN [Suspect]
     Indication: PRODUCT USED FOR UNKNOWN INDICATION
     Dosage: UNK
     Route: 065
  3. VITAMIN D [Concomitant]
     Dosage: UNK
  4. ADVIL PM [Suspect]
     Indication: INSOMNIA
     Dosage: 200 MG, UNK
     Route: 048
     Dates: start: 20110301, end: 20110301

REACTIONS (3)
  - URINARY TRACT INFECTION [None]
  - INSOMNIA [None]
  - ESCHERICHIA SEPSIS [None]
